FAERS Safety Report 10005846 (Version 2)
Quarter: 2014Q1

REPORT INFORMATION
  Report Type: Spontaneous
  Country: FR (occurrence: FR)
  Receive Date: 20140313
  Receipt Date: 20140319
  Transmission Date: 20141002
  Serious: Yes (Hospitalization)
  Sender: FDA-Public Use
  Company Number: FR-ACCORD-022419

PATIENT
  Age: 62 Year
  Sex: Female

DRUGS (8)
  1. FLUOROURACIL [Suspect]
     Indication: RECTAL CANCER METASTATIC
     Dosage: FLUROURACIL 50 MG/ML (FOURTH COURSE - FOLFOX PROTOCOL).
     Route: 042
     Dates: start: 20140122
  2. OXALIPLATIN [Suspect]
     Indication: RECTAL CANCER METASTATIC
     Route: 042
     Dates: start: 20140122
  3. ZOPHREN [Concomitant]
     Indication: PREMEDICATION
     Dosage: RECEIVED AT 01:50 PM
     Route: 042
     Dates: start: 20140122
  4. LEVOTHYROXINE [Concomitant]
  5. FOLINIC ACID [Concomitant]
     Dates: start: 20140122
  6. AVASTIN [Concomitant]
     Dates: start: 20140120
  7. SOLUMEDROL [Concomitant]
     Indication: PREMEDICATION
     Dosage: RECEIVED AT 01:50 PM
     Route: 042
     Dates: start: 20140122
  8. TENORETIC [Concomitant]

REACTIONS (2)
  - Infusion related reaction [Recovered/Resolved]
  - Respiratory distress [Recovered/Resolved]
